FAERS Safety Report 11748410 (Version 4)
Quarter: 2016Q1

REPORT INFORMATION
  Report Type: Spontaneous
  Country: US (occurrence: None)
  Receive Date: 20151117
  Receipt Date: 20160126
  Transmission Date: 20160525
  Serious: Yes (Other)
  Sender: FDA-Public Use
  Company Number: US-MDT-ADR-2015-02177

PATIENT
  Age: 10 Year
  Sex: Male

DRUGS (1)
  1. LIORESAL [Suspect]
     Active Substance: BACLOFEN
     Dosage: 469.8 MCG/DAY

REACTIONS (7)
  - Drug withdrawal syndrome [None]
  - Excessive granulation tissue [None]
  - Infusion site mass [None]
  - Apnoea [None]
  - Depressed level of consciousness [None]
  - Scar [None]
  - Hiatus hernia [None]
